FAERS Safety Report 16100959 (Version 1)
Quarter: 2019Q1

REPORT INFORMATION
  Report Type: Spontaneous
  Country: US (occurrence: US)
  Receive Date: 20190321
  Receipt Date: 20190321
  Transmission Date: 20190418
  Serious: No
  Sender: FDA-Public Use
  Company Number: US-SA-2019SA075072

PATIENT
  Sex: Female

DRUGS (9)
  1. CETIRIZINE [Concomitant]
     Active Substance: CETIRIZINE HYDROCHLORIDE
  2. JANUVIA [Concomitant]
     Active Substance: SITAGLIPTIN PHOSPHATE
  3. MULTIVITAMIN [VITAMINS NOS] [Concomitant]
  4. VITAMIN D [Concomitant]
     Active Substance: CHOLECALCIFEROL
  5. ACYCLOVIR [ACICLOVIR] [Concomitant]
     Active Substance: ACYCLOVIR
  6. DUPIXENT [Suspect]
     Active Substance: DUPILUMAB
  7. SYNTHROID [Concomitant]
     Active Substance: LEVOTHYROXINE SODIUM
  8. VERPAMIL [Concomitant]
     Active Substance: VERAPAMIL HYDROCHLORIDE
  9. LORATADINE. [Concomitant]
     Active Substance: LORATADINE

REACTIONS (1)
  - Arthralgia [Not Recovered/Not Resolved]
